FAERS Safety Report 4391351-8 (Version None)
Quarter: 2004Q2

REPORT INFORMATION
  Report Type: 
  Country: None (occurrence: None)
  Receive Date: 20040621
  Receipt Date: 20031029
  Transmission Date: 20050107
  Serious: Yes (Hospitalization, Other)
  Sender: FDA-Public Use
  Company Number: USA-2003-0010589

PATIENT
  Sex: Female

DRUGS (3)
  1. OXYCONTIN [Suspect]
  2. LORTAB [Suspect]
  3. LORCET-HD [Suspect]

REACTIONS (5)
  - DRUG ABUSER [None]
  - DRUG DEPENDENCE [None]
  - DRUG WITHDRAWAL SYNDROME [None]
  - EUPHORIC MOOD [None]
  - ILL-DEFINED DISORDER [None]
